FAERS Safety Report 5586218-3 (Version None)
Quarter: 2007Q4

REPORT INFORMATION
  Report Type: 
  Country: None (occurrence: None)
  Receive Date: 20071203
  Receipt Date: 20070217
  Transmission Date: 20080405
  Serious: Yes (Other)
  Sender: FDA-Public Use
  Company Number: 2007002729

PATIENT
  Age: 62 Year
  Sex: Male
  Weight: 77.1 kg

DRUGS (1)
  1. ZYVOX [Suspect]
     Indication: STAPHYLOCOCCAL BACTERAEMIA
     Dosage: (600 MG,2 IN 1 D),INTRAVENOUS
     Route: 042
     Dates: start: 20060320, end: 20060820

REACTIONS (1)
  - NEUROPATHY PERIPHERAL [None]
